FAERS Safety Report 24992593 (Version 1)
Quarter: 2025Q1

REPORT INFORMATION
  Report Type: Spontaneous
  Country: US (occurrence: US)
  Receive Date: 20250221
  Receipt Date: 20250221
  Transmission Date: 20250408
  Serious: Yes (Other)
  Sender: NOVO NORDISK
  Company Number: US-NOVOPROD-1373116

PATIENT
  Age: 44 Year
  Sex: Female
  Weight: 86.168 kg

DRUGS (1)
  1. OZEMPIC [Suspect]
     Active Substance: SEMAGLUTIDE
     Indication: Obesity
     Route: 058
     Dates: start: 2024

REACTIONS (5)
  - Ligament rupture [Unknown]
  - Malaise [Unknown]
  - Abdominal pain upper [Unknown]
  - Eructation [Unknown]
  - Product use in unapproved indication [Unknown]
